FAERS Safety Report 15327831 (Version 1)
Quarter: 2018Q3

REPORT INFORMATION
  Report Type: Spontaneous
  Country: US (occurrence: US)
  Receive Date: 20180828
  Receipt Date: 20180828
  Transmission Date: 20181010
  Serious: No
  Sender: FDA-Public Use
  Company Number: US-ROCHE-2145927

PATIENT
  Sex: Female
  Weight: 59.02 kg

DRUGS (1)
  1. TECENTRIQ [Suspect]
     Active Substance: ATEZOLIZUMAB
     Indication: NON-SMALL CELL LUNG CANCER
     Dosage: ATEZOLIZUMAB STARTED ABOUT 1 YEAR AGO
     Route: 042

REACTIONS (1)
  - Dizziness [Not Recovered/Not Resolved]
